FAERS Safety Report 18441584 (Version 1)
Quarter: 2020Q4

REPORT INFORMATION
  Report Type: Spontaneous
  Country: US (occurrence: US)
  Receive Date: 20201029
  Receipt Date: 20201029
  Transmission Date: 20210114
  Serious: Yes (Other)
  Sender: FDA-Public Use
  Company Number: US-TARO-2020TAR01626

PATIENT
  Age: 65 Year
  Sex: Female

DRUGS (1)
  1. ACETAMINOPHEN. [Suspect]
     Active Substance: ACETAMINOPHEN
     Indication: PRODUCT USED FOR UNKNOWN INDICATION
     Dosage: 650 MILLIGRAM, THE NIGHT BEFORE AND THE DAY OF CLINICAL DETERIORATION DURING HER ENTIRE HOSPITALIZAT
     Route: 065

REACTIONS (2)
  - Pyroglutamic acidosis [Recovering/Resolving]
  - Hyperammonaemic encephalopathy [Recovering/Resolving]
